FAERS Safety Report 7669712-0 (Version None)
Quarter: 2011Q3

REPORT INFORMATION
  Report Type: 
  Country: None (occurrence: None)
  Receive Date: 20110808
  Receipt Date: 20110801
  Transmission Date: 20111222
  Serious: Yes (Other)
  Sender: FDA-Public Use
  Company Number: US-US-EMD SERONO, INC.-7063702

PATIENT
  Sex: Female
  Weight: 59 kg

DRUGS (2)
  1. REBIF [Suspect]
     Indication: PRODUCT USED FOR UNKNOWN INDICATION
     Route: 058
     Dates: start: 20101130, end: 20110726
  2. CIPROFLOXACIN HCL [Concomitant]
     Indication: URINARY TRACT INFECTION

REACTIONS (7)
  - HYPOAESTHESIA [None]
  - ALOPECIA [None]
  - HYPERHIDROSIS [None]
  - DIZZINESS [None]
  - AUTOIMMUNE THYROIDITIS [None]
  - CENTRAL NERVOUS SYSTEM LESION [None]
  - BLOOD CORTISOL DECREASED [None]
